FAERS Safety Report 6168806-9 (Version None)
Quarter: 2009Q2

REPORT INFORMATION
  Report Type: 
  Country: None (occurrence: None)
  Receive Date: 20090427
  Receipt Date: 20090421
  Transmission Date: 20091009
  Serious: Yes (Hospitalization)
  Sender: FDA-Public Use
  Company Number: FR-TEVA-188427ISR

PATIENT
  Sex: Female
  Weight: 48.5 kg

DRUGS (2)
  1. COPAXONE [Suspect]
     Indication: MULTIPLE SCLEROSIS
     Route: 058
  2. EUGYNON [Concomitant]
     Route: 048

REACTIONS (2)
  - RAYNAUD'S PHENOMENON [None]
  - VASCULITIS [None]
